FAERS Safety Report 7542287-2 (Version None)
Quarter: 2011Q2

REPORT INFORMATION
  Report Type: 
  Country: None (occurrence: None)
  Receive Date: 20110613
  Receipt Date: 20110606
  Transmission Date: 20111010
  Serious: Yes (Death)
  Sender: FDA-Public Use
  Company Number: JP-PFIZER INC-2011125235

PATIENT
  Age: 61 Year
  Sex: Female

DRUGS (3)
  1. CELECOXIB [Suspect]
     Indication: OSTEOARTHRITIS
     Dosage: 100 MG, BID
     Route: 048
     Dates: start: 20100521
  2. ARTZ [Concomitant]
     Dosage: UNK
     Dates: start: 20100528, end: 20110513
  3. KETOPROFEN [Concomitant]
     Dosage: UNK, TAPE
     Dates: start: 20100512, end: 20110501

REACTIONS (1)
  - DEATH [None]
